FAERS Safety Report 17074802 (Version 1)
Quarter: 2019Q4

REPORT INFORMATION
  Report Type: Report from Study
  Country: IT (occurrence: IT)
  Receive Date: 20191126
  Receipt Date: 20191126
  Transmission Date: 20200122
  Serious: Yes (Death, Other)
  Sender: FDA-Public Use
  Company Number: IT-BRISTOL-MYERS SQUIBB COMPANY-BMS-2019-112295

PATIENT
  Age: 81 Year
  Sex: Male

DRUGS (2)
  1. TRIATEC [LOSARTAN POTASSIUM] [Concomitant]
     Indication: PRODUCT USED FOR UNKNOWN INDICATION
     Dosage: UNK
     Route: 048
  2. APIXABAN [Suspect]
     Active Substance: APIXABAN
     Indication: DEEP VEIN THROMBOSIS
     Dosage: 1 DOSAGE FORM, DAILY DOSAGE
     Route: 048
     Dates: end: 20191001

REACTIONS (2)
  - Retroperitoneal haematoma [Fatal]
  - Haemoglobin decreased [Fatal]

NARRATIVE: CASE EVENT DATE: 20191001
